FAERS Safety Report 22536125 (Version 1)
Quarter: 2023Q2

REPORT INFORMATION
  Report Type: Spontaneous
  Country: US (occurrence: US)
  Receive Date: 20230608
  Receipt Date: 20230608
  Transmission Date: 20230721
  Serious: No
  Sender: FDA-Public Use
  Company Number: US-SA-SAC20230607001319

PATIENT
  Sex: Male

DRUGS (5)
  1. DUPIXENT [Suspect]
     Active Substance: DUPILUMAB
     Indication: Asthma
     Dosage: 300 MG, QOW
     Route: 058
     Dates: start: 20210805
  2. IPRATROPIUM [Concomitant]
     Active Substance: IPRATROPIUM
  3. PREDNISONE [Concomitant]
     Active Substance: PREDNISONE
  4. PROCTO-MED HC [Concomitant]
     Active Substance: HYDROCORTISONE
  5. CORTICOSTEROID NOS [Concomitant]
     Active Substance: CORTICOSTEROID NOS
     Dosage: UNK UNK, QD
     Route: 048

REACTIONS (2)
  - Impaired quality of life [Unknown]
  - Eye irritation [Unknown]
